FAERS Safety Report 7465525-3 (Version None)
Quarter: 2011Q1

REPORT INFORMATION
  Report Type: 
  Country: None (occurrence: None)
  Receive Date: 20110302
  Receipt Date: 20100716
  Transmission Date: 20110831
  Serious: Yes (Hospitalization)
  Sender: FDA-Public Use
  Company Number: 163-21880-10071676

PATIENT
  Age: 70 Year
  Sex: Female

DRUGS (11)
  1. COZAAR [Concomitant]
  2. COREG [Concomitant]
  3. PROCHLORPERAZINE MALEATE [Concomitant]
  4. DECADRON [Concomitant]
  5. LUNESTA [Concomitant]
  6. DETROL [Concomitant]
  7. REVLIMID [Suspect]
     Indication: MULTIPLE MYELOMA
     Dosage: 25 MG, DAILY FOR 21 DAYS, OFF 7 DAYS, PO; 25 MG, DAILY FOR 21 DAYS, PO; 25 MG, 1 IN 1 D, PO
     Route: 048
     Dates: start: 20091201
  8. REVLIMID [Suspect]
     Indication: MULTIPLE MYELOMA
     Dosage: 25 MG, DAILY FOR 21 DAYS, OFF 7 DAYS, PO; 25 MG, DAILY FOR 21 DAYS, PO; 25 MG, 1 IN 1 D, PO
     Route: 048
     Dates: start: 20090301
  9. REVLIMID [Suspect]
     Indication: MULTIPLE MYELOMA
     Dosage: 25 MG, DAILY FOR 21 DAYS, OFF 7 DAYS, PO; 25 MG, DAILY FOR 21 DAYS, PO; 25 MG, 1 IN 1 D, PO
     Route: 048
     Dates: start: 20100720
  10. HYOSCYAMINE (HYOSCYAMINE) [Concomitant]
  11. ASPIRIN [Concomitant]

REACTIONS (1)
  - PILONIDAL CYST [None]
